FAERS Safety Report 8045202 (Version 7)
Quarter: 2013Q2

REPORT INFORMATION
  Report Type: Spontaneous
  Country: US (occurrence: US)
  Receive Date: 20110720
  Receipt Date: 20130528
  Transmission Date: 20140414
  Serious: Yes (Hospitalization, Congenital Anomaly, Other)
  Sender: FDA-Public Use
  Company Number: US-PFIZER INC-2011158560

PATIENT
  Sex: Female
  Weight: 3.5 kg

DRUGS (6)
  1. EFFEXOR XR [Suspect]
     Indication: ANXIETY
     Dosage: 37.5 MG, 1X/DAY
     Route: 064
     Dates: start: 2005, end: 2005
  2. EFFEXOR XR [Suspect]
     Dosage: 75 MG, 1X/DAY
     Route: 064
     Dates: start: 20050315
  3. EFFEXOR [Suspect]
     Dosage: UNK
     Route: 064
  4. DIGOXIN [Concomitant]
     Dosage: UNK
     Route: 064
     Dates: start: 20060209
  5. PRENATAL VITAMINS [Concomitant]
     Dosage: UNK
     Route: 064
  6. KEFLEX [Concomitant]
     Dosage: UNK
     Route: 064

REACTIONS (20)
  - Maternal exposure timing unspecified [Unknown]
  - Coarctation of the aorta [Recovered/Resolved]
  - Atrial septal defect [Unknown]
  - Patent ductus arteriosus [Unknown]
  - Supraventricular tachycardia [Not Recovered/Not Resolved]
  - Congenital pulmonary valve disorder [Unknown]
  - Cardiac disorder [Unknown]
  - Hyperdynamic left ventricle [Unknown]
  - Tricuspid valve incompetence [Unknown]
  - Pericardial effusion [Unknown]
  - Dilatation ventricular [Unknown]
  - Atrioventricular block first degree [Unknown]
  - Gastrooesophageal reflux disease [Unknown]
  - Macrocephaly [Unknown]
  - Weight decreased [Unknown]
  - Congenital anomaly [Unknown]
  - Right atrial dilatation [Unknown]
  - Left ventricular hypertrophy [Unknown]
  - Cardiomyopathy [Unknown]
  - Asthma [Unknown]
